FAERS Safety Report 11413348 (Version 1)
Quarter: 2015Q3

REPORT INFORMATION
  Report Type: Spontaneous
  Country: US (occurrence: US)
  Receive Date: 20150821
  Receipt Date: 20150821
  Transmission Date: 20151125
  Serious: Yes (Other)
  Sender: FDA-Public Use
  Company Number: US-ELI_LILLY_AND_COMPANY-US201210001030

PATIENT
  Sex: Male

DRUGS (2)
  1. HUMULIN R [Suspect]
     Active Substance: INSULIN HUMAN
     Indication: DIABETES MELLITUS
     Dosage: UNK
     Dates: start: 20080527
  2. BYETTA [Concomitant]
     Active Substance: EXENATIDE
     Dosage: 5 UG, UNK

REACTIONS (2)
  - Hypoglycaemia [Unknown]
  - Incorrect dose administered [Recovered/Resolved]
